FAERS Safety Report 9337859 (Version 1)
Quarter: 2013Q2

REPORT INFORMATION
  Report Type: Report from Study
  Country: RU (occurrence: RU)
  Receive Date: 20130607
  Receipt Date: 20130607
  Transmission Date: 20140414
  Serious: Yes (Life-Threatening, Hospitalization)
  Sender: FDA-Public Use
  Company Number: RU-SANOFI-AVENTIS-2013SA057240

PATIENT
  Age: 66 Year
  Sex: Male
  Weight: 107 kg

DRUGS (4)
  1. CABAZITAXEL [Suspect]
     Indication: PROSTATE CANCER METASTATIC
  2. ANTINEOPLASTIC AGENTS [Suspect]
     Indication: PROSTATE CANCER METASTATIC
  3. PREDNISONE [Suspect]
     Indication: PROSTATE CANCER METASTATIC
     Route: 048
  4. PREDNISONE [Concomitant]
     Route: 048
     Dates: start: 20130423

REACTIONS (3)
  - Respiratory failure [Unknown]
  - Leukaemoid reaction [Unknown]
  - Pleural effusion [Unknown]
